FAERS Safety Report 6878739-8 (Version None)
Quarter: 2010Q3

REPORT INFORMATION
  Report Type: 
  Country: None (occurrence: None)
  Receive Date: 20100728
  Receipt Date: 20100716
  Transmission Date: 20110219
  Serious: Yes (Hospitalization)
  Sender: FDA-Public Use
  Company Number: US-WYE-H16270210

PATIENT
  Sex: Female
  Weight: 61.29 kg

DRUGS (5)
  1. PRISTIQ [Suspect]
     Indication: DEPRESSION
     Route: 048
     Dates: start: 20090901
  2. KLONOPIN [Concomitant]
     Indication: ANXIETY
     Dosage: UNKNOWN
  3. CLARITIN [Concomitant]
     Indication: HYPERSENSITIVITY
     Dosage: UNKNOWN
  4. FOSAMAX [Concomitant]
     Indication: ARTHRITIS
     Dosage: UNKNOWN
  5. CALTRATE [Concomitant]
     Indication: ARTHRITIS
     Dosage: UNKNOWN

REACTIONS (9)
  - ANXIETY [None]
  - CONDITION AGGRAVATED [None]
  - DEHYDRATION [None]
  - DIARRHOEA [None]
  - DRUG INEFFECTIVE [None]
  - MEDICATION RESIDUE [None]
  - NIGHT SWEATS [None]
  - TEARFULNESS [None]
  - URINARY TRACT INFECTION [None]
